FAERS Safety Report 6916586-9 (Version None)
Quarter: 2010Q3

REPORT INFORMATION
  Report Type: 
  Country: None (occurrence: None)
  Receive Date: 20100810
  Receipt Date: 20100803
  Transmission Date: 20110219
  Serious: Yes (Other)
  Sender: FDA-Public Use
  Company Number: GB-BRISTOL-MYERS SQUIBB COMPANY-15228000

PATIENT
  Sex: Male

DRUGS (1)
  1. APROVEL [Suspect]
     Dosage: APROVEL TAKEN LESS THAN 10 YEARS.

REACTIONS (1)
  - BENIGN LUNG NEOPLASM [None]
